FAERS Safety Report 8864087 (Version 1)
Quarter: 2012Q4

REPORT INFORMATION
  Report Type: 
  Country: US (occurrence: US)
  Receive Date: 20121024
  Receipt Date: 20121024
  Transmission Date: 20130627
  Serious: No
  Sender: FDA-Public Use
  Company Number: US-AMGEN-USASP2011065595

PATIENT

DRUGS (7)
  1. ENBREL [Suspect]
     Indication: PRODUCT USED FOR UNKNOWN INDICATION
     Dosage: 50 mg, UNK
     Route: 058
  2. SIMVASTATIN [Concomitant]
     Dosage: 10 mg, UNK
  3. MULTIVITAMIN [Concomitant]
  4. FISH OIL [Concomitant]
  5. TENORETIC [Concomitant]
     Dosage: 100
  6. ASPIR-81 [Concomitant]
     Dosage: 81 mg, UNK
  7. CELEXA [Concomitant]
     Dosage: 10 mg, UNK

REACTIONS (1)
  - Weight increased [Unknown]
